FAERS Safety Report 4551345-6 (Version None)
Quarter: 2005Q1

REPORT INFORMATION
  Report Type: 
  Country: None (occurrence: None)
  Receive Date: 20050107
  Receipt Date: 20041227
  Transmission Date: 20050727
  Serious: Yes (Life-Threatening)
  Sender: FDA-Public Use
  Company Number: RENA-11225

PATIENT
  Age: 85 Year
  Sex: Male
  Weight: 51 kg

DRUGS (7)
  1. RENAGEL [Suspect]
     Indication: HYPERPHOSPHATAEMIA
     Dosage: 0.75 G TID PO
     Route: 048
     Dates: start: 20031217, end: 20041117
  2. LASIX [Concomitant]
  3. ALLOPURINOL [Concomitant]
  4. TANKARU [Concomitant]
  5. ALOSENN [Concomitant]
  6. ARTIST [Concomitant]
  7. EPOGIN [Concomitant]

REACTIONS (8)
  - ARTERIAL HAEMORRHAGE [None]
  - CARDIAC FAILURE [None]
  - COLONIC HAEMATOMA [None]
  - HAEMATOMA [None]
  - HAEMOGLOBIN DECREASED [None]
  - MELAENA [None]
  - RECTAL HAEMORRHAGE [None]
  - RED BLOOD CELL COUNT DECREASED [None]
